FAERS Safety Report 4939528-4 (Version None)
Quarter: 2006Q1

REPORT INFORMATION
  Report Type: 
  Country: None (occurrence: None)
  Receive Date: 20060310
  Receipt Date: 20060223
  Transmission Date: 20060701
  Serious: Yes (Disabling)
  Sender: FDA-Public Use
  Company Number: ESWYE423723FEB06

PATIENT
  Age: 45 Year
  Sex: Female
  Weight: 72 kg

DRUGS (1)
  1. ENBREL [Suspect]
     Indication: RHEUMATOID ARTHRITIS
     Route: 058
     Dates: start: 20050118, end: 20050225

REACTIONS (1)
  - HYPERTENSIVE CRISIS [None]
